FAERS Safety Report 25508047 (Version 2)
Quarter: 2025Q3

REPORT INFORMATION
  Report Type: Spontaneous
  Country: US (occurrence: US)
  Receive Date: 20250703
  Receipt Date: 20250721
  Transmission Date: 20251021
  Serious: Yes (Other)
  Sender: TEVA
  Company Number: US-TEVA-VS-3347835

PATIENT
  Age: 26 Year
  Sex: Female

DRUGS (4)
  1. GABAPENTIN [Suspect]
     Active Substance: GABAPENTIN
     Indication: Myalgia
     Route: 065
     Dates: start: 202008, end: 2020
  2. Ethinylestradiol Norgestimate [Concomitant]
     Indication: Contraception
     Route: 065
     Dates: end: 2020
  3. ESCITALOPRAM OXALATE [Concomitant]
     Active Substance: ESCITALOPRAM OXALATE
     Indication: Anxiety
     Route: 065
     Dates: start: 202008, end: 2020
  4. SPIRONOLACTONE [Concomitant]
     Active Substance: SPIRONOLACTONE
     Indication: Acne
     Route: 065
     Dates: end: 2020

REACTIONS (1)
  - Dysphemia [Recovering/Resolving]

NARRATIVE: CASE EVENT DATE: 20200101
